FAERS Safety Report 20035364 (Version 2)
Quarter: 2021Q4

REPORT INFORMATION
  Report Type: Spontaneous
  Country: US (occurrence: US)
  Receive Date: 20211104
  Receipt Date: 20211116
  Transmission Date: 20220303
  Serious: Yes (Other)
  Sender: FDA-Public Use
  Company Number: US-TEVA-2021-US-1972576

PATIENT
  Age: 67 Year
  Sex: Female

DRUGS (11)
  1. OXYCODONE [Suspect]
     Active Substance: OXYCODONE
     Indication: Neurodermatitis
     Dosage: 30 MILLIGRAM DAILY;
     Route: 065
  2. RISPERIDONE [Suspect]
     Active Substance: RISPERIDONE
     Indication: Post herpetic neuralgia
     Dosage: .5 MILLIGRAM DAILY; NIGHTLY
     Route: 065
     Dates: start: 202001
  3. RISPERIDONE [Suspect]
     Active Substance: RISPERIDONE
     Dosage: 1 MILLIGRAM DAILY; NIGHTLY
     Route: 065
     Dates: start: 202002
  4. RISPERIDONE [Suspect]
     Active Substance: RISPERIDONE
     Dosage: 2 MILLIGRAM DAILY; NIGHTLY
     Route: 065
     Dates: start: 202007
  5. RISPERIDONE [Suspect]
     Active Substance: RISPERIDONE
     Dosage: 4 MILLIGRAM DAILY; NIGHTLY
     Route: 065
     Dates: start: 202010
  6. BUTORPHANOL [Suspect]
     Active Substance: BUTORPHANOL
     Indication: Post herpetic neuralgia
     Dosage: 1 MILLIGRAM DAILY;
     Route: 045
     Dates: start: 202010
  7. PREGABALIN [Concomitant]
     Active Substance: PREGABALIN
     Indication: Neurodermatitis
     Dosage: 50 MILLIGRAM DAILY;
     Route: 065
  8. MIRTAZAPINE [Concomitant]
     Active Substance: MIRTAZAPINE
     Indication: Neurodermatitis
     Dosage: 15 MILLIGRAM DAILY; NIGHTLY FOR 8 MONTHS
     Route: 065
  9. CYCLOSPORINE [Concomitant]
     Active Substance: CYCLOSPORINE
     Indication: Neurodermatitis
     Dosage: 200 MILLIGRAM DAILY; FOR 1MONTH
     Route: 065
  10. BOTULINUM TOXIN NOS [Concomitant]
     Active Substance: BOTULINUM TOXIN NOS
     Indication: Neurodermatitis
     Route: 065
  11. LIDOCAINE [Concomitant]
     Active Substance: LIDOCAINE
     Indication: Post herpetic neuralgia
     Route: 061
     Dates: start: 202001

REACTIONS (3)
  - Pruritus [Recovering/Resolving]
  - Non-24-hour sleep-wake disorder [Recovering/Resolving]
  - Off label use [Unknown]

NARRATIVE: CASE EVENT DATE: 20200101
